FAERS Safety Report 4330093-1 (Version None)
Quarter: 2004Q1

REPORT INFORMATION
  Report Type: 
  Country: None (occurrence: None)
  Receive Date: 20040329
  Receipt Date: 20040312
  Transmission Date: 20041129
  Serious: Yes (Disabling)
  Sender: FDA-Public Use
  Company Number: 200410273BVD

PATIENT
  Age: 65 Year
  Sex: 0

DRUGS (1)
  1. LIPOBAY (CERIVASTATIN SODIUM) [Suspect]
     Dosage: 0.2 MG, TOTAL DAILY, ORAL
     Route: 048
     Dates: start: 19991201

REACTIONS (16)
  - ASTHMA [None]
  - BLINDNESS UNILATERAL [None]
  - BLOOD PRESSURE INCREASED [None]
  - DRUG INTOLERANCE [None]
  - DUODENITIS [None]
  - EAR DISORDER [None]
  - GASTRITIS EROSIVE [None]
  - HYPOACUSIS [None]
  - LEUKOENCEPHALOPATHY [None]
  - NASAL POLYPS [None]
  - NUCLEAR MAGNETIC RESONANCE IMAGING BRAIN ABNORMAL [None]
  - OESOPHAGITIS [None]
  - RETINAL ARTERY OCCLUSION [None]
  - VENTRICULAR EXTRASYSTOLES [None]
  - VERTIGO [None]
  - VESTIBULAR NEURONITIS [None]
